FAERS Safety Report 16563908 (Version 1)
Quarter: 2019Q3

REPORT INFORMATION
  Report Type: Spontaneous
  Country: US (occurrence: US)
  Receive Date: 20190712
  Receipt Date: 20190712
  Transmission Date: 20191004
  Serious: No
  Sender: FDA-Public Use
  Company Number: US-BAUSCH-BL-2018-016714

PATIENT
  Age: 41 Year
  Sex: Female

DRUGS (1)
  1. JUBLIA [Suspect]
     Active Substance: EFINACONAZOLE
     Indication: ONYCHOMYCOSIS
     Dosage: SINCE SPRING
     Route: 061
     Dates: start: 2017

REACTIONS (1)
  - Therapeutic product effect incomplete [Not Recovered/Not Resolved]
